FAERS Safety Report 6090738-5 (Version None)
Quarter: 2009Q1

REPORT INFORMATION
  Report Type: 
  Country: None (occurrence: None)
  Receive Date: 20090224
  Receipt Date: 20090202
  Transmission Date: 20090719
  Serious: No
  Sender: FDA-Public Use
  Company Number: US-ABBOTT-09P-163-0501120-00

PATIENT
  Sex: Female

DRUGS (13)
  1. SIMCOR [Suspect]
     Indication: BLOOD TRIGLYCERIDES INCREASED
     Dosage: 500/20MG EVERY NIGHT
     Dates: start: 20090119
  2. ASPIRIN [Concomitant]
     Indication: DRUG USE FOR UNKNOWN INDICATION
  3. TRICOR [Concomitant]
     Indication: DRUG USE FOR UNKNOWN INDICATION
     Dosage: 145
  4. NEXIUM [Concomitant]
     Indication: DRUG USE FOR UNKNOWN INDICATION
  5. CLARITIN EX [Concomitant]
     Indication: DRUG USE FOR UNKNOWN INDICATION
  6. FUROSEMIDE [Concomitant]
     Indication: DRUG USE FOR UNKNOWN INDICATION
  7. NASOREL SPRAY [Concomitant]
     Indication: DRUG USE FOR UNKNOWN INDICATION
  8. GENERIC REGLAN [Concomitant]
     Indication: DRUG USE FOR UNKNOWN INDICATION
  9. METROCREAM [Concomitant]
     Indication: DRUG USE FOR UNKNOWN INDICATION
  10. RESTASIS [Concomitant]
     Indication: DRUG USE FOR UNKNOWN INDICATION
  11. VITAMIN C WITH D [Concomitant]
     Indication: DRUG USE FOR UNKNOWN INDICATION
  12. CELPROZIL [Concomitant]
     Indication: SINUSITIS
     Dosage: (SECOND ROUND)
  13. CELPROZIL [Concomitant]
     Indication: BRONCHITIS

REACTIONS (4)
  - BRONCHITIS [None]
  - FLUSHING [None]
  - NASOPHARYNGITIS [None]
  - SINUSITIS [None]
